FAERS Safety Report 10168814 (Version 1)
Quarter: 2014Q2

REPORT INFORMATION
  Report Type: Spontaneous
  Country: US (occurrence: None)
  Receive Date: 20140512
  Receipt Date: 20140512
  Transmission Date: 20141212
  Serious: No
  Sender: FDA-Public Use
  Company Number: None

PATIENT
  Age: 59 Year
  Sex: Female

DRUGS (1)
  1. SIMVASTATIN [Suspect]
     Route: 048
     Dates: start: 20140318, end: 20140424

REACTIONS (1)
  - Myalgia [None]
